FAERS Safety Report 22590183 (Version 1)
Quarter: 2023Q2

REPORT INFORMATION
  Report Type: Spontaneous
  Country: US (occurrence: US)
  Receive Date: 20230612
  Receipt Date: 20230612
  Transmission Date: 20230721
  Serious: Yes (Other)
  Sender: FDA-Public Use
  Company Number: US-TEVA-2023-US-2894855

PATIENT

DRUGS (6)
  1. HYDROXYCHLOROQUINE [Suspect]
     Active Substance: HYDROXYCHLOROQUINE
     Indication: Product used for unknown indication
     Dosage: 2 DOSAGE FORMS DAILY; 1-AM, 1-PM
     Route: 065
     Dates: start: 202002
  2. XELJANZ XR [Concomitant]
     Active Substance: TOFACITINIB CITRATE
     Indication: Dermatomyositis
     Route: 065
     Dates: start: 202002
  3. XELJANZ XR [Concomitant]
     Active Substance: TOFACITINIB CITRATE
     Indication: Interstitial lung disease
  4. TACROLIMUS [Concomitant]
     Active Substance: TACROLIMUS
     Indication: Product used for unknown indication
     Dosage: 4 DOSAGE FORMS DAILY; 2-AM, 2-PM
     Route: 065
     Dates: start: 202002
  5. SILDENAFIL [Concomitant]
     Active Substance: SILDENAFIL
     Indication: Product used for unknown indication
     Dosage: 3 DOSAGE FORMS DAILY; 1-AM, 1-NOON, 1-PM
     Route: 065
     Dates: start: 202103
  6. SULFASALAZINE EC [Concomitant]
     Active Substance: SULFASALAZINE
     Indication: Product used for unknown indication
     Dosage: 6 DOSAGE FORMS DAILY; 2-AM, 2-NOON, 2-PM
     Route: 065
     Dates: start: 202108

REACTIONS (1)
  - Thrombosis [Unknown]
